FAERS Safety Report 8020973-8 (Version None)
Quarter: 2012Q1

REPORT INFORMATION
  Report Type: 
  Country: None (occurrence: None)
  Receive Date: 20120104
  Receipt Date: 20111227
  Transmission Date: 20120608
  Serious: Yes (Hospitalization, Other)
  Sender: FDA-Public Use
  Company Number: US-BAYER-2011-041530

PATIENT
  Age: 23 Year
  Sex: Female
  Weight: 91 kg

DRUGS (3)
  1. YASMIN [Suspect]
     Indication: CONTRACEPTION
     Dosage: UNK
     Dates: start: 20030601, end: 20050601
  2. YASMIN [Suspect]
     Indication: MENSTRUATION IRREGULAR
  3. IBUPROFEN [Concomitant]
     Dosage: UNK
     Dates: start: 20040401, end: 20040501

REACTIONS (9)
  - CHOLELITHIASIS [None]
  - ANXIETY [None]
  - PAIN [None]
  - ABDOMINAL PAIN [None]
  - INJURY [None]
  - GENERAL PHYSICAL HEALTH DETERIORATION [None]
  - GALLBLADDER DISORDER [None]
  - EMOTIONAL DISTRESS [None]
  - CHOLECYSTITIS CHRONIC [None]
